FAERS Safety Report 25240110 (Version 1)
Quarter: 2025Q2

REPORT INFORMATION
  Report Type: Spontaneous
  Country: GB (occurrence: GB)
  Receive Date: 20250425
  Receipt Date: 20250425
  Transmission Date: 20250716
  Serious: Yes (Other)
  Sender: TAKEDA
  Company Number: None

PATIENT
  Sex: Male

DRUGS (1)
  1. LISDEXAMFETAMINE DIMESYLATE [Suspect]
     Active Substance: LISDEXAMFETAMINE DIMESYLATE
     Indication: Product used for unknown indication
     Dosage: 30 MILLIGRAM, QD

REACTIONS (6)
  - Panic attack [Recovering/Resolving]
  - Palpitations [Recovered/Resolved]
  - Suicidal ideation [Recovering/Resolving]
  - Myalgia [Recovered/Resolved]
  - Anxiety [Recovering/Resolving]
  - Nausea [Recovered/Resolved]
